FAERS Safety Report 16492583 (Version 1)
Quarter: 2019Q2

REPORT INFORMATION
  Report Type: Spontaneous
  Country: US (occurrence: US)
  Receive Date: 20190628
  Receipt Date: 20190628
  Transmission Date: 20190711
  Serious: No
  Sender: FDA-Public Use
  Company Number: US-INDIVIOR LIMITED-INDV-119648-2019

PATIENT
  Age: 20 Year
  Sex: Male

DRUGS (9)
  1. ALPRAZOLAM. [Suspect]
     Active Substance: ALPRAZOLAM
     Indication: PRODUCT USED FOR UNKNOWN INDICATION
     Dosage: 2 MILLIGRAM (INTERMITTENTLY)
     Route: 048
  2. SUBOXONE [Suspect]
     Active Substance: BUPRENORPHINE HYDROCHLORIDE\NALOXONE HYDROCHLORIDE
     Indication: PRODUCT USED FOR UNKNOWN INDICATION
     Dosage: 8 MG FILMS (3 FILMS DAILY) (BETWEEN FIRST AND SECOND SUBLOCADE INJECTIONS)
     Route: 060
  3. SUBOXONE [Suspect]
     Active Substance: BUPRENORPHINE HYDROCHLORIDE\NALOXONE HYDROCHLORIDE
     Dosage: 8 MG FILMS (2 FILMS DAILY) (BETWEEN SECOND AND THIRD SUBLOCADE INJECTION)
     Route: 060
  4. FENTANYL. [Suspect]
     Active Substance: FENTANYL
     Dosage: UNK, USED DAILY
     Route: 065
  5. FENTANYL. [Suspect]
     Active Substance: FENTANYL
     Indication: PRODUCT USED FOR UNKNOWN INDICATION
     Dosage: USED HALF FENTANYL THE DAYS OF EACH WEEK BETWEEN FIRST AND SECOND SUBLOCADE INJECTIONS
     Route: 065
  6. SUBLOCADE [Suspect]
     Active Substance: BUPRENORPHINE
     Indication: DRUG DEPENDENCE
     Dosage: 300 MILLIGRAM, QMO (THREE INJECTIONS)
     Route: 065
     Dates: start: 20190329
  7. CLONAZEPAM. [Concomitant]
     Active Substance: CLONAZEPAM
     Indication: PRODUCT USED FOR UNKNOWN INDICATION
     Dosage: 2 MILLIGRAM, QD
     Route: 048
  8. SERTRALINE [Concomitant]
     Active Substance: SERTRALINE HYDROCHLORIDE
     Indication: ANXIETY
     Dosage: 100 MILLIGRAM, QD
     Route: 048
  9. QUETIAPINE. [Concomitant]
     Active Substance: QUETIAPINE
     Indication: ANXIETY
     Dosage: 100 MILLIGRAM, QD
     Route: 048

REACTIONS (3)
  - Drug abuse [Not Recovered/Not Resolved]
  - Drug withdrawal syndrome [Recovering/Resolving]
  - Euphoric mood [Not Recovered/Not Resolved]
